FAERS Safety Report 19941980 (Version 1)
Quarter: 2021Q4

REPORT INFORMATION
  Report Type: Spontaneous
  Country: CO (occurrence: CO)
  Receive Date: 20211012
  Receipt Date: 20211012
  Transmission Date: 20220303
  Serious: Yes (Other)
  Sender: FDA-Public Use
  Company Number: CO-ORPHANEU-2021004024

PATIENT

DRUGS (5)
  1. SIGNIFOR LAR [Suspect]
     Active Substance: PASIREOTIDE PAMOATE
     Indication: Acromegaly
     Dosage: 60 MILLIGRAM
     Route: 030
     Dates: start: 2017, end: 20210910
  2. TESTOSTERONE ENANTHATE [Concomitant]
     Active Substance: TESTOSTERONE ENANTHATE
     Indication: Hormone therapy
     Dosage: 250 MILLIGRAM C/25 DAYS
  3. CABERGOLINE [Concomitant]
     Active Substance: CABERGOLINE
     Indication: Acid base balance abnormal
     Dosage: 2 MILLIGRAM, C/7 DAYS
  4. LOSARTAN [Concomitant]
     Active Substance: LOSARTAN
     Indication: Hypertension
     Dosage: 850 MILLIGRAM, C/DAYS
  5. METFORMIN [Concomitant]
     Active Substance: METFORMIN HYDROCHLORIDE
     Indication: Type 2 diabetes mellitus
     Dosage: 850 MILLIGRAM, C/DAYS

REACTIONS (2)
  - Insulin-like growth factor increased [Recovering/Resolving]
  - Therapeutic product ineffective [Recovered/Resolved]

NARRATIVE: CASE EVENT DATE: 20210901
